FAERS Safety Report 18906315 (Version 1)
Quarter: 2021Q1

REPORT INFORMATION
  Report Type: Spontaneous
  Country: US (occurrence: US)
  Receive Date: 20210218
  Receipt Date: 20210218
  Transmission Date: 20210420
  Serious: Yes (Other)
  Sender: FDA-Public Use
  Company Number: US-ROCHE-2767664

PATIENT
  Sex: Female

DRUGS (3)
  1. ACTEMRA [Suspect]
     Active Substance: TOCILIZUMAB
     Indication: RHEUMATOID ARTHRITIS
     Dosage: 162 MG/0.9 ML UNDER SKIN ;ONGOING: UNKNOWN
     Route: 058
     Dates: start: 20210131
  2. ACTEMRA [Suspect]
     Active Substance: TOCILIZUMAB
  3. RINVOQ [Suspect]
     Active Substance: UPADACITINIB
     Indication: PRODUCT USED FOR UNKNOWN INDICATION
     Route: 048

REACTIONS (5)
  - Ulcer haemorrhage [Recovering/Resolving]
  - Localised infection [Unknown]
  - Sinusitis [Unknown]
  - Hypersensitivity [Unknown]
  - Injection site rash [Unknown]
